FAERS Safety Report 17084639 (Version 2)
Quarter: 2020Q2

REPORT INFORMATION
  Report Type: Spontaneous
  Country: US (occurrence: US)
  Receive Date: 20191127
  Receipt Date: 20200515
  Transmission Date: 20200713
  Serious: Yes (Death, Other)
  Sender: FDA-Public Use
  Company Number: US-TEVA-2019-US-1145313

PATIENT
  Sex: Female

DRUGS (2)
  1. SORIATANE [Suspect]
     Active Substance: ACITRETIN
     Indication: PRODUCT USED FOR UNKNOWN INDICATION
     Route: 065
     Dates: start: 2016
  2. SORIATANE [Suspect]
     Active Substance: ACITRETIN
     Dosage: AT AN UNKNOWN DOSE AND FREQUENCY
     Dates: start: 2019

REACTIONS (3)
  - Death [Fatal]
  - End stage renal disease [Unknown]
  - Feeling abnormal [Unknown]
